FAERS Safety Report 19039981 (Version 2)
Quarter: 2021Q2

REPORT INFORMATION
  Report Type: Spontaneous
  Country: IT (occurrence: IT)
  Receive Date: 20210322
  Receipt Date: 20210412
  Transmission Date: 20210717
  Serious: Yes (Other)
  Sender: FDA-Public Use
  Company Number: IT-TAKEDA-2021TUS017580

PATIENT
  Age: 57 Year
  Sex: Female

DRUGS (1)
  1. BRIGATINIB [Suspect]
     Active Substance: BRIGATINIB
     Indication: LUNG CANCER METASTATIC
     Dosage: 180 MILLIGRAM, QD
     Route: 048

REACTIONS (2)
  - Off label use [Unknown]
  - Malignant neoplasm progression [Unknown]
